FAERS Safety Report 8544893-5 (Version None)
Quarter: 2012Q3

REPORT INFORMATION
  Report Type: 
  Country: None (occurrence: None)
  Receive Date: 20120727
  Receipt Date: 20120723
  Transmission Date: 20120928
  Serious: Yes (Hospitalization)
  Sender: FDA-Public Use
  Company Number: US-ROCHE-1091400

PATIENT
  Sex: Male

DRUGS (14)
  1. MAGNESIUM CHLORIDE [Concomitant]
     Dates: start: 20101011
  2. NORVASC [Concomitant]
     Dates: start: 20110722
  3. SODIUM BICARBONATE [Concomitant]
     Dates: start: 20111014
  4. BACTRIM [Concomitant]
     Dates: start: 20061026
  5. CALCITRIOL [Concomitant]
     Dates: start: 20110721
  6. MULTI-VITAMIN [Concomitant]
     Dates: start: 20071113
  7. PREDNISONE [Suspect]
     Indication: RENAL TRANSPLANT
     Route: 048
     Dates: start: 20070329
  8. POTASSIUM CHLORIDE [Concomitant]
     Dates: start: 20090713
  9. CELLCEPT [Suspect]
     Indication: RENAL TRANSPLANT
     Route: 048
     Dates: start: 20061026
  10. BLINDED BELATACEPT [Suspect]
     Indication: RENAL TRANSPLANT
     Route: 042
     Dates: start: 20061012
  11. CALCIUM CITRATE [Concomitant]
     Dates: start: 20100722
  12. PEPCID [Concomitant]
     Dates: start: 20070301
  13. LABETALOL HCL [Concomitant]
     Dates: start: 20110722
  14. WARFARIN SODIUM [Concomitant]
     Dates: start: 20120325

REACTIONS (2)
  - URINARY TRACT INFECTION [None]
  - ELECTROLYTE IMBALANCE [None]
